FAERS Safety Report 6029434-9 (Version None)
Quarter: 2009Q1

REPORT INFORMATION
  Report Type: 
  Country: None (occurrence: None)
  Receive Date: 20090105
  Receipt Date: 20081223
  Transmission Date: 20090719
  Serious: Yes (Other)
  Sender: FDA-Public Use
  Company Number: 2008S1000438

PATIENT
  Age: 69 Year
  Sex: Male
  Weight: 64.5 kg

DRUGS (18)
  1. CUBICIN [Suspect]
     Indication: DECUBITUS ULCER
     Dosage: 6 MG/KG; Q48H; IV
     Route: 042
     Dates: start: 20080912, end: 20080918
  2. CUBICIN [Suspect]
     Indication: ENTEROCOCCAL INFECTION
     Dosage: 6 MG/KG; Q48H; IV
     Route: 042
     Dates: start: 20080912, end: 20080918
  3. CUBICIN [Suspect]
     Indication: OSTEOMYELITIS
     Dosage: 6 MG/KG; Q48H; IV
     Route: 042
     Dates: start: 20080912, end: 20080918
  4. PANTOPRAZOLE SODIUM [Concomitant]
  5. AMIODARONE HCL [Concomitant]
  6. ALBUTEROL [Concomitant]
  7. IPRATROPIUM BROMIDE [Concomitant]
  8. LINEZOLID [Concomitant]
  9. LOVASTATIN [Concomitant]
  10. LISINOPRIL [Concomitant]
  11. WARFARIN [Concomitant]
  12. ASPIRIN [Concomitant]
  13. NU-IRON [Concomitant]
  14. CALCIUM [Concomitant]
  15. ASCORBIC ACID [Concomitant]
  16. CEFEPIME [Concomitant]
  17. VANCOMYCIN HYDROCHLORIDE [Concomitant]
  18. GENTAMICIN [Concomitant]

REACTIONS (8)
  - BLOOD DISORDER [None]
  - DISSEMINATED INTRAVASCULAR COAGULATION [None]
  - INFECTION [None]
  - NEUTROPENIA [None]
  - PATHOGEN RESISTANCE [None]
  - RENAL FAILURE ACUTE [None]
  - RESPIRATORY FAILURE [None]
  - WHITE BLOOD CELL COUNT DECREASED [None]
